FAERS Safety Report 5438034-0 (Version None)
Quarter: 2007Q3

REPORT INFORMATION
  Report Type: 
  Country: None (occurrence: None)
  Receive Date: 20070831
  Receipt Date: 20070629
  Transmission Date: 20080115
  Serious: No
  Sender: FDA-Public Use
  Company Number: A0660697A

PATIENT
  Age: 49 Year
  Sex: Female

DRUGS (1)
  1. ALLI [Suspect]
     Dates: start: 20070620, end: 20070627

REACTIONS (7)
  - ABDOMINAL DISTENSION [None]
  - DEFAECATION URGENCY [None]
  - FAECES DISCOLOURED [None]
  - FREQUENT BOWEL MOVEMENTS [None]
  - ILL-DEFINED DISORDER [None]
  - RECTAL DISCHARGE [None]
  - WEIGHT INCREASED [None]
